FAERS Safety Report 7595673 (Version 5)
Quarter: 2012Q4

REPORT INFORMATION
  Report Type: 
  Country: US (occurrence: US)
  Receive Date: 20100920
  Receipt Date: 20121217
  Transmission Date: 20130627
  Serious: Yes (Hospitalization, Other)
  Sender: FDA-Public Use
  Company Number: US-ASTRAZENECA-2010SE23953

PATIENT
  Age: 45 Year
  Sex: Female
  Weight: 54.4 kg

DRUGS (10)
  1. SEROQUEL [Suspect]
     Indication: SLEEP DISORDER
     Dosage: 50 MG ONE TABLET IN THE MORNING AND ONE TABLET IN THE EVENING
     Route: 048
  2. SEROQUEL [Suspect]
     Indication: SLEEP DISORDER
     Route: 048
     Dates: start: 201002, end: 201004
  3. SEROQUEL [Suspect]
     Indication: SLEEP DISORDER
     Route: 048
     Dates: start: 201004, end: 201004
  4. SEROQUEL [Suspect]
     Indication: SLEEP DISORDER
     Route: 048
     Dates: start: 201004
  5. SEROQUEL [Suspect]
     Indication: SLEEP DISORDER
     Route: 048
  6. SEROQUEL [Suspect]
     Indication: SLEEP DISORDER
     Route: 048
  7. SEROQUEL [Suspect]
     Indication: SLEEP DISORDER
     Route: 048
     Dates: end: 201211
  8. KLONOPIN [Concomitant]
  9. AMITRYPTILLINE [Concomitant]
  10. LEVOTHYROXINE [Concomitant]
     Indication: THYROID DISORDER
     Route: 048

REACTIONS (20)
  - Tendon rupture [Unknown]
  - Insomnia [Unknown]
  - Cough [Unknown]
  - Somnambulism [Unknown]
  - Influenza [Unknown]
  - Migraine [Unknown]
  - Nervous system disorder [Unknown]
  - Headache [Unknown]
  - Gastric ulcer [Unknown]
  - Pain [Unknown]
  - Aphagia [Unknown]
  - Stress [Unknown]
  - Therapeutic response unexpected [Unknown]
  - Somnolence [Unknown]
  - Weight increased [Recovering/Resolving]
  - Fatigue [Unknown]
  - Intentional drug misuse [Unknown]
  - Off label use [Unknown]
  - Drug dose omission [Unknown]
  - Drug ineffective for unapproved indication [Unknown]
